FAERS Safety Report 16383433 (Version 2)
Quarter: 2019Q3

REPORT INFORMATION
  Report Type: Spontaneous
  Country: US (occurrence: US)
  Receive Date: 20190603
  Receipt Date: 20190725
  Transmission Date: 20191004
  Serious: No
  Sender: FDA-Public Use
  Company Number: US-PFIZER INC-2018353975

PATIENT
  Age: 69 Year
  Sex: Female

DRUGS (12)
  1. TAXOTERE [Suspect]
     Active Substance: DOCETAXEL
     Indication: BREAST CANCER
     Dosage: UNK, 4 CYCLES, EVERY THREE WEEKS
     Dates: start: 20121012, end: 20121220
  2. NEOSAR [Concomitant]
     Active Substance: CYCLOPHOSPHAMIDE
     Dosage: UNK
  3. AMLODIPINE [Concomitant]
     Active Substance: AMLODIPINE BESYLATE
     Dosage: UNK
     Dates: start: 1989
  4. GEMFIBROZIL. [Concomitant]
     Active Substance: GEMFIBROZIL
     Dosage: UNK
     Dates: start: 1989
  5. PRILOSEC [Concomitant]
     Active Substance: OMEPRAZOLE MAGNESIUM
     Dosage: UNK
  6. ASPIRIN 81 [Concomitant]
     Active Substance: ASPIRIN
     Dosage: UNK
     Dates: start: 1995, end: 201901
  7. DOCETAXEL. [Suspect]
     Active Substance: DOCETAXEL
     Indication: BREAST CANCER
     Dosage: UNK, 4 CYCLES, EVERY THREE WEEKS
     Dates: start: 20121012, end: 20121220
  8. L-THYROXINE [LEVOTHYROXINE] [Concomitant]
     Active Substance: LEVOTHYROXINE
     Dosage: UNK
     Dates: start: 1975
  9. METOPROLOL. [Concomitant]
     Active Substance: METOPROLOL
     Dosage: UNK
     Dates: start: 1989
  10. TAMOXIFEN [Concomitant]
     Active Substance: TAMOXIFEN
     Dosage: UNK
     Dates: start: 201212
  11. SYNTHROID [Concomitant]
     Active Substance: LEVOTHYROXINE SODIUM
     Dosage: UNK
     Dates: start: 198501
  12. MAXZIDE [Concomitant]
     Active Substance: HYDROCHLOROTHIAZIDE\TRIAMTERENE
     Dosage: UNK
     Dates: start: 1989

REACTIONS (4)
  - Hair texture abnormal [Not Recovered/Not Resolved]
  - Hair disorder [Not Recovered/Not Resolved]
  - Hair colour changes [Not Recovered/Not Resolved]
  - Alopecia [Not Recovered/Not Resolved]

NARRATIVE: CASE EVENT DATE: 20130601
